FAERS Safety Report 21597399 (Version 1)
Quarter: 2022Q4

REPORT INFORMATION
  Report Type: Spontaneous
  Country: US (occurrence: None)
  Receive Date: 20221114
  Receipt Date: 20221114
  Transmission Date: 20230112
  Serious: Yes (Hospitalization)
  Sender: FDA-Public Use
  Company Number: None

PATIENT
  Age: 42 Year
  Sex: Female
  Weight: 92.4 kg

DRUGS (4)
  1. JARDIANCE [Suspect]
     Active Substance: EMPAGLIFLOZIN
     Indication: Type 2 diabetes mellitus
     Dosage: FREQUENCY : DAILY;?
     Route: 048
     Dates: start: 20220906, end: 20221001
  2. TRULICITY [Concomitant]
     Active Substance: DULAGLUTIDE
  3. GLIMEPIRIDE [Concomitant]
     Active Substance: GLIMEPIRIDE
  4. PIOGLITAZONE [Concomitant]
     Active Substance: PIOGLITAZONE

REACTIONS (10)
  - Nausea [None]
  - Vomiting [None]
  - Abdominal pain upper [None]
  - Tachycardia [None]
  - Blood glucose increased [None]
  - Blood ketone body increased [None]
  - Albumin globulin ratio increased [None]
  - Blood gases abnormal [None]
  - PCO2 increased [None]
  - Therapy cessation [None]

NARRATIVE: CASE EVENT DATE: 20221001
